FAERS Safety Report 10668339 (Version 1)
Quarter: 2014Q4

REPORT INFORMATION
  Report Type: Spontaneous
  Country: US (occurrence: None)
  Receive Date: 20141217
  Receipt Date: 20141217
  Transmission Date: 20150529
  Serious: No
  Sender: FDA-Public Use
  Company Number: 2014CT000150

PATIENT
  Age: 46 Year
  Sex: Female

DRUGS (15)
  1. OMEPRAZOLE. [Concomitant]
     Active Substance: OMEPRAZOLE
  2. BACLOFEN. [Concomitant]
     Active Substance: BACLOFEN
  3. NORCO [Concomitant]
     Active Substance: ACETAMINOPHEN\HYDROCODONE BITARTRATE
  4. ULTRAM ER [Concomitant]
     Active Substance: TRAMADOL HYDROCHLORIDE
  5. LOSARTAN [Concomitant]
     Active Substance: LOSARTAN
  6. LYRICA [Concomitant]
     Active Substance: PREGABALIN
  7. DIAZEPAM. [Concomitant]
     Active Substance: DIAZEPAM
  8. CELEBREX [Concomitant]
     Active Substance: CELECOXIB
  9. KORLYM [Suspect]
     Active Substance: MIFEPRISTONE
     Indication: CUSHING^S SYNDROME
     Route: 048
     Dates: start: 20140830
  10. PROVIGIL [Concomitant]
     Active Substance: MODAFINIL
  11. NASONEX [Concomitant]
     Active Substance: MOMETASONE FUROATE
  12. MELATONIN [Concomitant]
     Active Substance: MELATONIN
  13. AMLODIPINE [Concomitant]
     Active Substance: AMLODIPINE BESYLATE
  14. PATANASE [Concomitant]
     Active Substance: OLOPATADINE HYDROCHLORIDE
  15. AMBIEN [Concomitant]
     Active Substance: ZOLPIDEM TARTRATE

REACTIONS (14)
  - Ocular discomfort [None]
  - Hot flush [None]
  - Pain in extremity [None]
  - Blood pressure increased [None]
  - Joint swelling [None]
  - Adrenal neoplasm [None]
  - Glycosylated haemoglobin decreased [None]
  - Arthralgia [None]
  - Erythromelalgia [None]
  - Asthenia [None]
  - Nausea [None]
  - Constipation [None]
  - Fatigue [None]
  - Heart rate increased [None]

NARRATIVE: CASE EVENT DATE: 2014
